FAERS Safety Report 13467455 (Version 2)
Quarter: 2017Q2

REPORT INFORMATION
  Report Type: Report from Study
  Country: IN (occurrence: IN)
  Receive Date: 20170421
  Receipt Date: 20170424
  Transmission Date: 20170830
  Serious: Yes (Death)
  Sender: FDA-Public Use
  Company Number: PHHY2017IN059252

PATIENT
  Age: 65 Year
  Sex: Female
  Weight: 60 kg

DRUGS (1)
  1. SPEXIB [Suspect]
     Active Substance: CERITINIB
     Indication: NON-SMALL CELL LUNG CANCER
     Dosage: 750 MG, QD
     Route: 048

REACTIONS (2)
  - Non-small cell lung cancer [Fatal]
  - Malignant neoplasm progression [Fatal]

NARRATIVE: CASE EVENT DATE: 20170416
